FAERS Safety Report 25814366 (Version 1)
Quarter: 2025Q3

REPORT INFORMATION
  Report Type: Spontaneous
  Country: US (occurrence: None)
  Receive Date: 20250917
  Receipt Date: 20250917
  Transmission Date: 20251021
  Serious: Yes (unspecified)
  Sender: FDA-CTU
  Company Number: None

PATIENT
  Age: 70 Year
  Sex: Female
  Weight: 72 kg

DRUGS (1)
  1. LEVOFLOXACIN [Suspect]
     Active Substance: LEVOFLOXACIN
     Indication: Sinusitis bacterial
     Dosage: OTHER QUANTITY : 1 TABLET(S);?FREQUENCY : TWICE A DAY;?
     Route: 048
     Dates: start: 20250819, end: 20250829

REACTIONS (18)
  - Hypotension [None]
  - Blood glucose decreased [None]
  - Blood potassium decreased [None]
  - Lethargy [None]
  - Dizziness [None]
  - Pain [None]
  - Fatigue [None]
  - Dyskinesia [None]
  - Musculoskeletal stiffness [None]
  - Tendon disorder [None]
  - Tendon pain [None]
  - Myalgia [None]
  - Impaired driving ability [None]
  - Gait inability [None]
  - Dizziness [None]
  - Hot flush [None]
  - Insomnia [None]
  - Photophobia [None]

NARRATIVE: CASE EVENT DATE: 20250819
